FAERS Safety Report 8956141 (Version 2)
Quarter: 2013Q3

REPORT INFORMATION
  Report Type: Spontaneous
  Country: US (occurrence: US)
  Receive Date: 20121210
  Receipt Date: 20130828
  Transmission Date: 20140515
  Serious: Yes (Other)
  Sender: FDA-Public Use
  Company Number: CHPA2012US023819

PATIENT
  Age: 70 Year
  Sex: Female

DRUGS (2)
  1. EXCEDRIN EXTRA STRENGTH [Suspect]
     Indication: HEADACHE
     Dosage: 2 DF, 2 TO 3 TIMES A DAY
     Route: 048
  2. DRUG THERAPY NOS [Concomitant]
     Dosage: 2 PILLS, 2-3 TIMES DAILY

REACTIONS (28)
  - Loss of consciousness [Recovered/Resolved]
  - Haemorrhagic stroke [Recovered/Resolved]
  - Cerebrovascular accident [Recovered/Resolved]
  - Cerebral haemorrhage [Recovered/Resolved]
  - Concussion [Recovered/Resolved]
  - Hypertension [Recovered/Resolved]
  - Cataract [Recovered/Resolved]
  - Astigmatism [Not Recovered/Not Resolved]
  - Middle ear effusion [Recovered/Resolved]
  - Intervertebral disc disorder [Not Recovered/Not Resolved]
  - Dizziness [Recovered/Resolved]
  - Hallucination, visual [Recovered/Resolved]
  - Hypokinesia [Recovered/Resolved]
  - Nodule [Not Recovered/Not Resolved]
  - Grip strength decreased [Not Recovered/Not Resolved]
  - Head injury [Recovered/Resolved]
  - Arthritis [Not Recovered/Not Resolved]
  - Fall [Recovered/Resolved]
  - Disease recurrence [Recovered/Resolved]
  - Neck pain [Recovered/Resolved]
  - Malaise [Recovered/Resolved]
  - Abdominal discomfort [Recovered/Resolved]
  - Migraine with aura [Recovered/Resolved]
  - Gait disturbance [Recovered/Resolved]
  - Back pain [Recovered/Resolved]
  - Stress [Recovered/Resolved]
  - Vomiting [Recovered/Resolved]
  - Nausea [Recovered/Resolved]
